FAERS Safety Report 5125642-X (Version None)
Quarter: 2006Q4

REPORT INFORMATION
  Report Type: 
  Country: None (occurrence: None)
  Receive Date: 20061006
  Receipt Date: 20060926
  Transmission Date: 20070319
  Serious: Yes (Hospitalization)
  Sender: FDA-Public Use
  Company Number: 2006-148450-NL

PATIENT
  Sex: Male

DRUGS (1)
  1. REMERON [Suspect]

REACTIONS (7)
  - AMNESIA [None]
  - BELLIGERENCE [None]
  - DRUG DOSE OMISSION [None]
  - DRUG WITHDRAWAL SYNDROME [None]
  - DYSARTHRIA [None]
  - HALLUCINATION, VISUAL [None]
  - PSYCHOTIC DISORDER [None]
